FAERS Safety Report 6489681-9 (Version None)
Quarter: 2009Q4

REPORT INFORMATION
  Report Type: 
  Country: None (occurrence: None)
  Receive Date: 20091207
  Receipt Date: 20091124
  Transmission Date: 20100525
  Serious: Yes (Hospitalization)
  Sender: FDA-Public Use
  Company Number: CIP09003278

PATIENT
  Age: 91 Year
  Sex: Female

DRUGS (9)
  1. RISEDRONATE SODIUM [Suspect]
     Indication: OSTEOPOROSIS
     Dosage: 17.5 MG ONCE WEEKLY, ORAL
     Route: 048
     Dates: start: 20040101, end: 20090927
  2. LANSOPRAZOLE [Concomitant]
  3. DIOVAN [Concomitant]
  4. EBASTEL (EBASTINE) [Concomitant]
  5. EPEL (EPERISONE HYDROCHLORIDE) [Concomitant]
  6. VIT K CAP [Concomitant]
  7. OPALMON (LIMAPROST) [Concomitant]
  8. SELBEX (TEPRENONE) [Concomitant]
  9. APLACE (TROXIPIDE) [Concomitant]

REACTIONS (4)
  - BONE PAIN [None]
  - FALL [None]
  - FEMUR FRACTURE [None]
  - PATHOLOGICAL FRACTURE [None]
